FAERS Safety Report 24392062 (Version 2)
Quarter: 2024Q4

REPORT INFORMATION
  Report Type: Spontaneous
  Country: BR (occurrence: BR)
  Receive Date: 20241003
  Receipt Date: 20241015
  Transmission Date: 20250114
  Serious: No
  Sender: BRACCO
  Company Number: BR-BRACCO-2024BR06176

PATIENT
  Age: 16 Year

DRUGS (1)
  1. PROHANCE [Suspect]
     Active Substance: GADOTERIDOL
     Indication: Magnetic resonance imaging pelvic
     Dosage: 10 ML, SINGLE
     Route: 042
     Dates: start: 20240826, end: 20240826

REACTIONS (2)
  - Erythema [Recovered/Resolved]
  - Pruritus [Recovered/Resolved]

NARRATIVE: CASE EVENT DATE: 20240826
